FAERS Safety Report 21147358 (Version 1)
Quarter: 2022Q3

REPORT INFORMATION
  Report Type: Spontaneous
  Country: GB (occurrence: GB)
  Receive Date: 20220729
  Receipt Date: 20220729
  Transmission Date: 20221027
  Serious: Yes (Disabling, Other)
  Sender: FDA-Public Use
  Company Number: GB-MHRA-MED-202207221048140000-VYBZR

PATIENT
  Age: 36 Year
  Sex: Female
  Weight: 62 kg

DRUGS (1)
  1. OXYBUTYNIN [Suspect]
     Active Substance: OXYBUTYNIN
     Indication: Bladder spasm
     Dosage: 10 MILLIGRAM, TID (10MG THREE TIMES DAILY)
     Route: 065
     Dates: start: 20211118, end: 20220715

REACTIONS (4)
  - Regurgitation [Recovered/Resolved]
  - Lethargy [Recovered/Resolved]
  - Nausea [Recovering/Resolving]
  - Dry mouth [Recovered/Resolved]

NARRATIVE: CASE EVENT DATE: 20220131
